FAERS Safety Report 4854391-8 (Version None)
Quarter: 2005Q4

REPORT INFORMATION
  Report Type: 
  Country: None (occurrence: None)
  Receive Date: 20051215
  Receipt Date: 20051206
  Transmission Date: 20060501
  Serious: Yes (Hospitalization)
  Sender: FDA-Public Use
  Company Number: GB-JNJFOC-20050502898

PATIENT
  Sex: Male
  Weight: 70 kg

DRUGS (17)
  1. REMICADE [Suspect]
     Indication: RHEUMATOID ARTHRITIS
     Route: 042
  2. ARAVA [Concomitant]
     Route: 065
  3. HEART MEDICATION [Concomitant]
  4. PREDNISOLONE [Concomitant]
  5. ASPIRIN [Concomitant]
     Route: 065
  6. BENDROFLUAZIDE [Concomitant]
     Route: 065
  7. RISEDRONATE [Concomitant]
     Route: 065
  8. EZETROL [Concomitant]
     Route: 065
  9. GOPTEN [Concomitant]
     Route: 065
  10. LANSOPRAZOLE [Concomitant]
     Route: 065
  11. CO PROXAMOL [Concomitant]
     Route: 065
  12. CO PROXAMOL [Concomitant]
     Route: 065
  13. STELAZINE [Concomitant]
     Route: 065
  14. AMLODIPINE [Concomitant]
     Route: 065
  15. BISOPROLOL [Concomitant]
     Route: 065
  16. TRANDOLAPRIL [Concomitant]
     Route: 065
  17. PLAVIX [Concomitant]
     Route: 065

REACTIONS (2)
  - INFECTED SKIN ULCER [None]
  - ISCHAEMIC ULCER [None]
